FAERS Safety Report 11078861 (Version 1)
Quarter: 2015Q2

REPORT INFORMATION
  Report Type: Spontaneous
  Country: US (occurrence: None)
  Receive Date: 20150429
  Receipt Date: 20150429
  Transmission Date: 20150821
  Serious: Yes (Other)
  Sender: FDA-Public Use
  Company Number: None

PATIENT
  Age: 38 Year
  Sex: Male
  Weight: 92.08 kg

DRUGS (1)
  1. COPAXONE [Suspect]
     Active Substance: GLATIRAMER ACETATE
     Indication: MULTIPLE SCLEROSIS
     Dosage: INJECTABLE
     Route: 058
     Dates: start: 20150403

REACTIONS (6)
  - Injection site pain [None]
  - Fatigue [None]
  - Depressed level of consciousness [None]
  - Myalgia [None]
  - Hypoaesthesia [None]
  - Contusion [None]

NARRATIVE: CASE EVENT DATE: 20150422
